FAERS Safety Report 24715965 (Version 1)
Quarter: 2024Q4

REPORT INFORMATION
  Report Type: Spontaneous
  Country: GB (occurrence: GB)
  Receive Date: 20241210
  Receipt Date: 20241210
  Transmission Date: 20250115
  Serious: Yes (Other)
  Sender: SANDOZ
  Company Number: None

PATIENT
  Age: 71 Year
  Sex: Female
  Weight: 78 kg

DRUGS (12)
  1. EZETIMIBE [Suspect]
     Active Substance: EZETIMIBE
     Indication: Product used for unknown indication
     Dosage: ONE TO BE TAKEN EACH DAY
     Route: 065
     Dates: start: 20241031
  2. ASPIRIN [Concomitant]
     Active Substance: ASPIRIN
     Indication: Product used for unknown indication
     Dosage: UNK UNK, QD, ONE TO BE TAKEN EACH MORNING LIFELONG
     Route: 065
     Dates: start: 20241028
  3. BISOPROLOL [Concomitant]
     Active Substance: BISOPROLOL
     Indication: Product used for unknown indication
     Dosage: UNK UNK, QD, ONE TO BE TAKEN EVERY MORNING
     Route: 065
     Dates: start: 20241028
  4. COCODAMOL [Concomitant]
     Active Substance: ACETAMINOPHEN\CODEINE PHOSPHATE
     Indication: Product used for unknown indication
     Dosage: UNK UNK, QID, ONE OR TWO TO BE TAKEN FOUR TIMES A DAY WHEN REQUIRED (CONTAINS PARACETAMOL)
     Route: 065
     Dates: start: 20241128
  5. EZETIMIBE [Concomitant]
     Active Substance: EZETIMIBE
     Indication: Product used for unknown indication
     Dosage: UNK UNK, QD, ONE TO BE TAKEN EACH DAY
     Route: 065
     Dates: start: 20241028
  6. GLYCERIN [Concomitant]
     Active Substance: GLYCERIN
     Indication: Product used for unknown indication
     Dosage: UNK UNK, BID
     Route: 065
     Dates: start: 20241104
  7. NITROGLYCERIN [Concomitant]
     Active Substance: NITROGLYCERIN
     Indication: Product used for unknown indication
     Dosage: UNK,SPRAY ONE OR TWO DOSES UNDER TONGUE AND THEN CLOSE MOUTH AS DIRECTED
     Route: 065
     Dates: start: 20241028
  8. LANSOPRAZOLE [Concomitant]
     Active Substance: LANSOPRAZOLE
     Indication: Product used for unknown indication
     Dosage: UNK UNK, QD, ONE TO BE TAKEN EACH MORNING
     Route: 065
     Dates: start: 20241028
  9. PEPPERMINT OIL [Concomitant]
     Active Substance: PEPPERMINT OIL
     Indication: Product used for unknown indication
     Dosage: UNK UNK, TID, ONE OR TWO TO BE TAKEN THREE TIMES A DAY BEFORE FOOD
     Route: 065
     Dates: start: 20241028
  10. RAMIPRIL [Concomitant]
     Active Substance: RAMIPRIL
     Indication: Product used for unknown indication
     Dosage: UNK UNK, QD, ONE TO BE TAKEN EACH MORNING
     Route: 065
     Dates: start: 20241028
  11. ROSUVASTATIN [Concomitant]
     Active Substance: ROSUVASTATIN
     Indication: Product used for unknown indication
     Dosage: UNK UNK, QD, ONE TO BE TAKEN EACH DAY
     Route: 065
     Dates: start: 20241028
  12. TICAGRELOR [Concomitant]
     Active Substance: TICAGRELOR
     Indication: Product used for unknown indication
     Dosage: UNK UNK, BID, ONE TO BE TAKEN TWICE A DAY FOR 12 MONTHS (STOP 22/10/25)
     Route: 065
     Dates: start: 20241028

REACTIONS (1)
  - Urinary incontinence [Recovered/Resolved]
